FAERS Safety Report 6623797-9 (Version None)
Quarter: 2010Q1

REPORT INFORMATION
  Report Type: 
  Country: None (occurrence: None)
  Receive Date: 20100310
  Receipt Date: 20100225
  Transmission Date: 20100710
  Serious: Yes (Other)
  Sender: FDA-Public Use
  Company Number: PHHY2010GB06730

PATIENT
  Sex: Male
  Weight: 108.08 kg

DRUGS (17)
  1. CLOZARIL [Suspect]
     Indication: SCHIZOPHRENIA
     Dosage: 550 MG, QD
     Dates: start: 20031127
  2. CLOZARIL [Suspect]
     Dosage: 525 MG, QD
  3. ZOPICLONE [Concomitant]
     Dosage: UNK
     Dates: start: 20060802
  4. ZOPICLONE [Concomitant]
     Dosage: UNK
     Dates: start: 20060802
  5. DIAZEPAM [Concomitant]
     Indication: ANXIETY
     Dosage: 1 DF, BID
     Dates: start: 20060428
  6. DIAZEPAM [Concomitant]
     Dosage: 10 MG, ONE NOCTE
     Dates: start: 20060613
  7. DIAZEPAM [Concomitant]
     Dosage: 10 MG, ONE NOCTE
     Dates: start: 20060717
  8. DIAZEPAM [Concomitant]
     Dosage: 10 MG, ONE NOCTE
     Dates: start: 20060731
  9. DIAZEPAM [Concomitant]
     Dosage: 10 MG, ONE NOCTE
     Dates: start: 20060815
  10. HYOSCINE [Concomitant]
     Dosage: 600 MG, UNK
     Route: 048
  11. SIMVASTATIN [Concomitant]
     Dosage: 400 MG, UNK
  12. VENLAFAXINE [Concomitant]
     Dosage: 75 MG, UNK
     Route: 048
  13. BENZATROPINE [Concomitant]
     Dosage: HALF TABLET AT NIGHT
     Dates: start: 20060428
  14. PROCYCLIDINE HYDROCHLORIDE 2MG TAB [Concomitant]
     Dosage: ONE AT NIGHT
     Dates: start: 20060531
  15. LIDOCAINE [Concomitant]
     Dosage: UNK
     Dates: start: 20070720
  16. PNEUMOVAX II [Concomitant]
  17. REVAXIS [Concomitant]

REACTIONS (4)
  - ANTIPSYCHOTIC DRUG LEVEL INCREASED [None]
  - HYPERLIPIDAEMIA [None]
  - MAJOR DEPRESSION [None]
  - SUICIDAL IDEATION [None]
